FAERS Safety Report 7407760-6 (Version None)
Quarter: 2011Q2

REPORT INFORMATION
  Report Type: 
  Country: None (occurrence: None)
  Receive Date: 20110412
  Receipt Date: 20110329
  Transmission Date: 20111010
  Serious: Yes (Death)
  Sender: FDA-Public Use
  Company Number: US-MYLANLABS-2011S1006820

PATIENT
  Age: 78 Year
  Sex: Female

DRUGS (10)
  1. GLIMEPIRIDE [Concomitant]
     Route: 065
  2. METFORMIN HCL [Suspect]
     Indication: TYPE 2 DIABETES MELLITUS
     Route: 065
  3. METOPROLOL TARTRATE [Concomitant]
     Route: 065
  4. FUROSEMIDE [Concomitant]
     Route: 065
  5. ZOLEDRONIC ACID [Suspect]
     Indication: OSTEOPOROSIS
     Dosage: INFUSION OF 5MG/100ML
  6. ERGOCALCIFEROL [Concomitant]
     Route: 065
  7. ROSUVASTATIN [Concomitant]
     Route: 065
  8. NATEGLINIDE [Concomitant]
     Dosage: BEFORE BREAKFAST
     Route: 065
  9. AMLODIPINE [Concomitant]
     Route: 065
  10. INDAPAMIDE [Concomitant]
     Route: 065

REACTIONS (2)
  - RENAL FAILURE ACUTE [None]
  - LACTIC ACIDOSIS [None]
